FAERS Safety Report 16141472 (Version 6)
Quarter: 2021Q1

REPORT INFORMATION
  Report Type: Spontaneous
  Country: US (occurrence: US)
  Receive Date: 20190401
  Receipt Date: 20210312
  Transmission Date: 20210419
  Serious: Yes (Hospitalization, Other)
  Sender: FDA-Public Use
  Company Number: US-PFIZER INC-2018321785

PATIENT
  Age: 65 Year
  Sex: Male

DRUGS (1)
  1. LYRICA [Suspect]
     Active Substance: PREGABALIN
     Dosage: 300 MG, 3X/DAY (2 CAPSULES 150MG EVERY 8 HOURS)
     Route: 048

REACTIONS (7)
  - Illness [Unknown]
  - Gangrene [Unknown]
  - Neoplasm malignant [Unknown]
  - Pain [Unknown]
  - Prescribed overdose [Unknown]
  - Fall [Unknown]
  - Gait disturbance [Unknown]
